FAERS Safety Report 24061760 (Version 1)
Quarter: 2024Q3

REPORT INFORMATION
  Report Type: Spontaneous
  Country: US (occurrence: None)
  Receive Date: 20240706
  Receipt Date: 20240706
  Transmission Date: 20241017
  Serious: Yes (Death)
  Sender: Public
  Company Number: None

PATIENT
  Age: 56 Year
  Sex: Male
  Weight: 108 kg

DRUGS (4)
  1. PREDNISONE [Suspect]
     Active Substance: PREDNISONE
     Indication: Drug therapy
     Dates: start: 20220610, end: 20220614
  2. atorvistatin [Concomitant]
  3. OMEPRAZOLE [Concomitant]
     Active Substance: OMEPRAZOLE
  4. blood pressure meds [Concomitant]

REACTIONS (7)
  - Splenomegaly [None]
  - Bone marrow disorder [None]
  - Blood lactate dehydrogenase increased [None]
  - Acute kidney injury [None]
  - Tumour lysis syndrome [None]
  - Hypervolaemia [None]
  - Multiple organ dysfunction syndrome [None]

NARRATIVE: CASE EVENT DATE: 20220610
